FAERS Safety Report 25526583 (Version 1)
Quarter: 2025Q3

REPORT INFORMATION
  Report Type: Report from Study
  Country: US (occurrence: US)
  Receive Date: 20250707
  Receipt Date: 20250707
  Transmission Date: 20251020
  Serious: No
  Sender: TRAVERE THERAPEUTICS
  Company Number: US-TRAVERE-2025TVT00978

PATIENT
  Age: 55 Year
  Sex: Female

DRUGS (1)
  1. FILSPARI [Suspect]
     Active Substance: SPARSENTAN
     Indication: Product used for unknown indication
     Route: 048
     Dates: start: 202409

REACTIONS (2)
  - Blood creatinine decreased [None]
  - Blood urea nitrogen/creatinine ratio increased [Unknown]

NARRATIVE: CASE EVENT DATE: 20241023
